FAERS Safety Report 24105091 (Version 1)
Quarter: 2024Q3

REPORT INFORMATION
  Report Type: Spontaneous
  Country: US (occurrence: US)
  Receive Date: 20240717
  Receipt Date: 20240717
  Transmission Date: 20241017
  Serious: Yes (Other)
  Sender: BRISTOL MYERS SQUIBB
  Company Number: US-BRISTOL-MYERS SQUIBB COMPANY-2024-107833

PATIENT
  Age: 69 Year
  Sex: Male

DRUGS (31)
  1. REVLIMID [Suspect]
     Active Substance: LENALIDOMIDE
     Indication: Plasma cell myeloma
     Route: 048
     Dates: start: 20211019
  2. REVLIMID [Suspect]
     Active Substance: LENALIDOMIDE
     Route: 048
  3. ACYCLOVIR [Concomitant]
     Active Substance: ACYCLOVIR
     Indication: Product used for unknown indication
     Dosage: TAKE 1 TABLET BY MOUTH TWICE DAILY
     Route: 048
  4. ALLOPURINOL [Concomitant]
     Active Substance: ALLOPURINOL
     Indication: Product used for unknown indication
     Dosage: TAKE 1 TABLET BY MOUTH DAILY
     Route: 048
  5. AMLODIPINE BESYLATE [Concomitant]
     Active Substance: AMLODIPINE BESYLATE
     Indication: Product used for unknown indication
     Route: 048
  6. AMOXICILLIN\CLAVULANATE POTASSIUM [Concomitant]
     Active Substance: AMOXICILLIN\CLAVULANATE POTASSIUM
     Indication: Product used for unknown indication
     Dosage: TAKE 1 TABLET BY MOUTH TWICE DAILY FOR 7 DAYS?875-125MG TABLETS
     Route: 048
  7. AMOXICILLIN [Concomitant]
     Active Substance: AMOXICILLIN
     Indication: Product used for unknown indication
     Dosage: TAKE 1 CAPSULE BYMOUTH THREE TIMES DAILY
     Route: 048
  8. CALCITONIN [Concomitant]
     Active Substance: CALCITONIN
     Indication: Product used for unknown indication
     Dosage: NASAL SPR 30 DOSES?USE 1 SPRAY INTRANASALLY DAILY
  9. CHLORHEXIDINE [Concomitant]
     Active Substance: CHLORHEXIDINE
     Indication: Product used for unknown indication
     Dosage: 0.12% ORAL RINS 473ML?SWISH 15 ML TWICE DAILY FOR 30SECONDS AND SPIT.USE MORNING AND NIGHT FOR1WEEK
     Route: 048
  10. COMIRNATY [Concomitant]
     Indication: Product used for unknown indication
     Dosage: 12+ (COVID) 23-24 SDV?ADMINISTER 0.3ML IN THE MUSCLE AS DIRECTED TODAY
     Route: 030
  11. DEXAMETHASONE [Concomitant]
     Active Substance: DEXAMETHASONE
     Indication: Product used for unknown indication
     Dosage: TAKE 5 TABLETS BY MOUTH 1 TIME AWEEK
     Route: 048
  12. DEXAMETHASONE [Concomitant]
     Active Substance: DEXAMETHASONE
     Dosage: TAKE 5 TABLETS BY MOUTH 1 TIME AWEEK
     Route: 048
  13. FAMOTIDINE [Concomitant]
     Active Substance: FAMOTIDINE
     Indication: Dyspepsia
     Dosage: TAKE 1 TABLET BY MOUTH DAILY
     Route: 048
  14. FUROSEMIDE [Concomitant]
     Active Substance: FUROSEMIDE
     Indication: Product used for unknown indication
     Dosage: TAKE 1 TABLET BY MOUTH DAILY
     Route: 048
  15. GABAPENTIN [Concomitant]
     Active Substance: GABAPENTIN
     Indication: Product used for unknown indication
     Dosage: TAKE 2 CAPSULES BY?MOUTH THREE TIMES?DAILY. MAX DAILY?AMOUNT: 1800 MG
     Route: 048
  16. GABAPENTIN [Concomitant]
     Active Substance: GABAPENTIN
     Dosage: TAKE 2 CAPSULES BY MOUTH EVERY MORNING AND AFTERNOON AND 3 CAPSULES AT BEDTIME
     Route: 048
  17. MORPHINE SULFATE [Concomitant]
     Active Substance: MORPHINE SULFATE
     Indication: Product used for unknown indication
     Dosage: TAKE 1 TABLET BY?MOUTH TWICE DAILY.?MAX DAILY AMOUNT:?30 MG.
     Route: 048
  18. MORPHINE SULFATE [Concomitant]
     Active Substance: MORPHINE SULFATE
     Dosage: TAKE 1 TABLET BY?MOUTH EVERY 12?HOURS. MAX DAILY?AMOUNT: 60 MG
     Route: 048
  19. NEBIVOLOL [Concomitant]
     Active Substance: NEBIVOLOL
     Indication: Hypertension
     Dosage: TAKE 1 TABLET BY?MOUTH DAILY
     Route: 048
  20. NEBIVOLOL [Concomitant]
     Active Substance: NEBIVOLOL
     Dosage: TAKE 1 TABLET BY?MOUTH IN THE?MORNING AND AT?BEDTIME./??TAKE 1 TABLET BY?MOUTH EVERY?MORNING AND TAK
     Route: 048
  21. ONDANSETRON [Concomitant]
     Active Substance: ONDANSETRON
     Indication: Prophylaxis of nausea and vomiting
     Dosage: DISSOLVE 1 TABLET?UNDER THE TONGUE?EVERY 8 HOURS AS?NEEDED FOR NAUSEA?OR VOMITING
     Route: 048
  22. OXYCODONE [Concomitant]
     Active Substance: OXYCODONE
     Indication: Pain
     Dosage: IMMEDIATE RELEASE?TAKE 1 TABLET BY?MOUTH EVERY 8?HOURS AS NEEDED F?PAIN MAX:15MG/DAY
     Route: 048
  23. OXYCODONE [Concomitant]
     Active Substance: OXYCODONE
     Dosage: IMMEDIATE RELEASE?TAKE 1 TABLET BY?MOUTH EVERY 8?HOURS AS NEEDED?FOR PAIN. MAX DAILY?AMOUNT: 30 MG
     Route: 048
  24. SIMVASTATIN [Concomitant]
     Active Substance: SIMVASTATIN
     Indication: Blood cholesterol increased
     Dosage: TAKE ONE TABLET AT NIGHT  BY MOUTH
     Route: 048
  25. SULFAMETHIZOLE\TRIMETHOPRIM [Concomitant]
     Active Substance: SULFAMETHIZOLE\TRIMETHOPRIM
     Indication: Product used for unknown indication
     Dosage: 800/160MG TB?TAKE 1 TABLET BY?MOUTH ON MONDAY,?WEDNESDAY, AND?FRIDAY OF EACH?WEEK
     Route: 048
  26. ASPIRIN [Concomitant]
     Active Substance: ASPIRIN
     Indication: Product used for unknown indication
     Dosage: LOW DOSE
  27. GLICLAZIDE [Concomitant]
     Active Substance: GLICLAZIDE
     Indication: Product used for unknown indication
  28. DARZALEX [Concomitant]
     Active Substance: DARATUMUMAB
     Indication: Product used for unknown indication
     Dosage: I VIAL?100MG/5ML
  29. DEXAMETHASONE [Concomitant]
     Active Substance: DEXAMETHASONE
     Indication: Product used for unknown indication
  30. ADULT MULTIVITAMIN [Concomitant]
     Indication: Product used for unknown indication
     Dosage: 50+?220S
  31. SENNA S [Concomitant]
     Active Substance: DOCUSATE SODIUM\SENNA LEAF
     Indication: Product used for unknown indication
     Dosage: 8.6-50MG

REACTIONS (2)
  - Gait inability [Unknown]
  - Spinal cord compression [Unknown]

NARRATIVE: CASE EVENT DATE: 20240601
